FAERS Safety Report 13238929 (Version 1)
Quarter: 2017Q1

REPORT INFORMATION
  Report Type: Spontaneous
  Country: GB (occurrence: GB)
  Receive Date: 20170216
  Receipt Date: 20170216
  Transmission Date: 20170428
  Serious: Yes (Hospitalization)
  Sender: FDA-Public Use
  Company Number: GB-TEVA-739994ACC

PATIENT
  Age: 95 Year
  Sex: Female
  Weight: 49 kg

DRUGS (6)
  1. PARACETAMOL [Concomitant]
     Active Substance: ACETAMINOPHEN
     Indication: PAIN
     Dosage: 4 TIMES/DAY.
     Dates: start: 20160428
  2. SUDOCREM [Concomitant]
     Dosage: AS DIRECTED.
     Dates: start: 20160224
  3. FORTISIP [Concomitant]
     Active Substance: CARBOHYDRATES\FATTY ACIDS\MINERALS\PROTEIN\VITAMINS
     Dosage: 1 DOSAGE FORMS DAILY;
     Dates: start: 20160224
  4. ZEROBASE [Concomitant]
     Dosage: AS DIRECTED.
     Dates: start: 20160224
  5. BACLOFEN. [Suspect]
     Active Substance: BACLOFEN
     Indication: DECUBITUS ULCER
     Dosage: 30 MILLIGRAM DAILY;
     Dates: start: 20170124
  6. ADCAL [Concomitant]
     Active Substance: CALCIUM CARBONATE
     Dosage: 2 DOSAGE FORMS DAILY;
     Dates: start: 20160512

REACTIONS (3)
  - Pneumonia [Unknown]
  - Somnolence [Unknown]
  - Hypernatraemia [Recovered/Resolved]

NARRATIVE: CASE EVENT DATE: 20170124
